FAERS Safety Report 4682353-2 (Version None)
Quarter: 2005Q2

REPORT INFORMATION
  Report Type: 
  Country: None (occurrence: None)
  Receive Date: 20050606
  Receipt Date: 20050525
  Transmission Date: 20051028
  Serious: Yes (Hospitalization)
  Sender: FDA-Public Use
  Company Number: FR-BRISTOL-MYERS SQUIBB COMPANY-12981544

PATIENT
  Age: 66 Year
  Sex: Female
  Weight: 82 kg

DRUGS (2)
  1. CISPLATIN [Suspect]
     Indication: BLADDER CANCER
     Dates: start: 20040625, end: 20040625
  2. GEMCITABINE [Suspect]
     Indication: BLADDER CANCER
     Dates: start: 20040701, end: 20040701

REACTIONS (1)
  - HYPERTHERMIA [None]
